FAERS Safety Report 4354680-X (Version None)
Quarter: 2004Q2

REPORT INFORMATION
  Report Type: 
  Country: None (occurrence: None)
  Receive Date: 20040507
  Receipt Date: 20040419
  Transmission Date: 20050107
  Serious: Yes (Other)
  Sender: FDA-Public Use
  Company Number: PHBS2004JP05196

PATIENT
  Age: 54 Year
  Sex: Male

DRUGS (2)
  1. FASTIC #AJ [Suspect]
     Indication: DIABETES MELLITUS
     Dosage: UNK, UNK
     Route: 048
     Dates: start: 20040303, end: 20040407
  2. BUTERAZINE [Concomitant]
     Indication: HYPERTENSION
     Dosage: 180 MG, UNK
     Dates: start: 20040303, end: 20040407

REACTIONS (5)
  - ALANINE AMINOTRANSFERASE INCREASED [None]
  - ASPARTATE AMINOTRANSFERASE INCREASED [None]
  - BLOOD BILIRUBIN INCREASED [None]
  - GAMMA-GLUTAMYLTRANSFERASE INCREASED [None]
  - LIVER DISORDER [None]
